FAERS Safety Report 13650764 (Version 2)
Quarter: 2018Q2

REPORT INFORMATION
  Report Type: Spontaneous
  Country: US (occurrence: US)
  Receive Date: 20170614
  Receipt Date: 20180530
  Transmission Date: 20180711
  Serious: No
  Sender: FDA-Public Use
  Company Number: US-ENDO PHARMACEUTICALS INC-2017-002656

PATIENT
  Age: 14 Year
  Sex: Female
  Weight: 48.4 kg

DRUGS (6)
  1. SUPPRELIN LA [Suspect]
     Active Substance: HISTRELIN ACETATE
     Indication: GENDER DYSPHORIA
     Dosage: ONE IMPLANT INSERTED IN LEFT UPPER ARM
     Route: 065
     Dates: start: 20170303, end: 20170421
  2. ZYRTEC [Concomitant]
     Active Substance: CETIRIZINE HYDROCHLORIDE
     Indication: HYPERSENSITIVITY
     Dosage: 50 MG, ONCE A YEAR (PLACED IN LEFT UPPER ARM)
     Route: 058
     Dates: start: 20170303, end: 20170421
  3. ZYRTEC [Concomitant]
     Active Substance: CETIRIZINE HYDROCHLORIDE
     Indication: SEASONAL ALLERGY
     Dosage: 50 MG, ONCE A YEAR (PLACED IN RIGHT UPPER ARM)
     Route: 058
     Dates: start: 20170512
  4. ETONOGESTREL [Concomitant]
     Active Substance: ETONOGESTREL
     Indication: PRODUCT USED FOR UNKNOWN INDICATION
  5. LUPRON [Concomitant]
     Active Substance: LEUPROLIDE ACETATE
     Indication: PRODUCT USED FOR UNKNOWN INDICATION
  6. ZOLOFT [Concomitant]
     Active Substance: SERTRALINE HYDROCHLORIDE
     Indication: DEPRESSION

REACTIONS (6)
  - Off label use [Not Recovered/Not Resolved]
  - Implant site abscess [Unknown]
  - Scab [Unknown]
  - Application site granuloma [Recovered/Resolved]
  - Device expulsion [Recovered/Resolved]
  - Product quality issue [Recovered/Resolved]

NARRATIVE: CASE EVENT DATE: 2017
